FAERS Safety Report 5008217-2 (Version None)
Quarter: 2006Q2

REPORT INFORMATION
  Report Type: 
  Country: None (occurrence: None)
  Receive Date: 20060523
  Receipt Date: 20060511
  Transmission Date: 20061013
  Serious: Yes (Hospitalization)
  Sender: FDA-Public Use
  Company Number: BE-JNJFOC-20060502926

PATIENT
  Age: 69 Year
  Sex: Male

DRUGS (12)
  1. REMICADE [Suspect]
     Route: 042
  2. ARAVA [Concomitant]
     Route: 065
  3. CORUNO [Concomitant]
     Route: 065
  4. DAFALGAN CODEINE [Concomitant]
     Route: 065
  5. DAFALGAN CODEINE [Concomitant]
     Route: 065
  6. FRAXIPARINE [Concomitant]
     Route: 065
  7. PANTOZOL [Concomitant]
     Route: 065
  8. PREDNISOLONE [Concomitant]
     Route: 065
  9. PROLOPA [Concomitant]
     Route: 065
  10. PROLOPA [Concomitant]
     Route: 065
  11. TEMESTA EXPIDET [Concomitant]
     Route: 065
  12. TENORMIN [Concomitant]
     Route: 065

REACTIONS (6)
  - ADRENOCORTICAL INSUFFICIENCY ACUTE [None]
  - ASTHENIA [None]
  - DUODENAL ULCER PERFORATION [None]
  - HERPES VIRUS INFECTION [None]
  - INFECTION [None]
  - PNEUMONIA [None]
